FAERS Safety Report 10215412 (Version 1)
Quarter: 2014Q2

REPORT INFORMATION
  Report Type: Report from Study
  Country: IT (occurrence: IT)
  Receive Date: 20140604
  Receipt Date: 20140604
  Transmission Date: 20141212
  Serious: Yes (Death)
  Sender: FDA-Public Use
  Company Number: IT-ROCHE-1410818

PATIENT
  Sex: Male
  Weight: 67 kg

DRUGS (6)
  1. BEVACIZUMAB [Suspect]
     Indication: LUNG NEOPLASM MALIGNANT
     Dosage: DATE OF LAST DOSE PRIOR TO SAE:28/APR/2014
     Route: 042
     Dates: start: 20140407, end: 20140428
  2. CISPLATIN [Suspect]
     Indication: LUNG NEOPLASM MALIGNANT
     Dosage: DATE OF LAST DOSE PRIOR TO SAE:30/APR/2014
     Route: 042
     Dates: start: 20140407, end: 20140430
  3. ETOPOSIDE [Suspect]
     Indication: LUNG NEOPLASM MALIGNANT
     Dosage: DATE OF LAST DOSE PRIOR TO SAE:30/APR/2014
     Route: 042
     Dates: start: 20140407, end: 20140430
  4. NORVASC [Concomitant]
     Indication: HYPERTENSION
     Route: 048
     Dates: start: 20140404
  5. OXYCONTIN [Concomitant]
     Indication: CHEST PAIN
     Route: 048
     Dates: start: 20140404
  6. LANSOPRAZOLO [Concomitant]
     Indication: PROPHYLAXIS
     Route: 048
     Dates: start: 20140404

REACTIONS (1)
  - Death [Fatal]
